FAERS Safety Report 14920064 (Version 1)
Quarter: 2018Q2

REPORT INFORMATION
  Report Type: Spontaneous
  Country: US (occurrence: US)
  Receive Date: 20180502
  Receipt Date: 20180502
  Transmission Date: 20180711
  Serious: Yes (Life-Threatening, Other)
  Sender: FDA-Public Use
  Company Number: None

PATIENT
  Age: 52 Year
  Sex: Male
  Weight: 107.05 kg

DRUGS (2)
  1. FAZACLO [Suspect]
     Active Substance: CLOZAPINE
  2. CLOZARIL [Suspect]
     Active Substance: CLOZAPINE
     Indication: DRUG THERAPY
     Dates: start: 20170118

REACTIONS (3)
  - Neoplasm skin [None]
  - Weight increased [None]
  - Aggression [None]

NARRATIVE: CASE EVENT DATE: 201701
